FAERS Safety Report 6471398-8 (Version None)
Quarter: 2009Q4

REPORT INFORMATION
  Report Type: 
  Country: None (occurrence: None)
  Receive Date: 20091201
  Receipt Date: 20091124
  Transmission Date: 20100525
  Serious: Yes (Hospitalization, Other)
  Sender: FDA-Public Use
  Company Number: 2009S1008652

PATIENT
  Sex: Male

DRUGS (4)
  1. PHOSPHOSODA FLAVOR NOT SPECIFIED [Suspect]
     Indication: COLONOSCOPY
     Dosage: ; PO
     Route: 048
     Dates: start: 20080904
  2. HYZAAR  /01284801/ [Concomitant]
  3. MULTIVITAMIN  /00831701/ [Concomitant]
  4. TYLENOL (CAPLET) [Concomitant]

REACTIONS (11)
  - ACCELERATED HYPERTENSION [None]
  - ANAEMIA [None]
  - DIALYSIS [None]
  - DYSPNOEA EXERTIONAL [None]
  - HYDRONEPHROSIS [None]
  - NEPHROLITHIASIS [None]
  - NEPHROSCLEROSIS [None]
  - OEDEMA PERIPHERAL [None]
  - RENAL CYST [None]
  - RENAL FAILURE ACUTE [None]
  - RENAL TUBULAR NECROSIS [None]
